FAERS Safety Report 7451613-4 (Version None)
Quarter: 2011Q2

REPORT INFORMATION
  Report Type: 
  Country: None (occurrence: None)
  Receive Date: 20110502
  Receipt Date: 20100402
  Transmission Date: 20111010
  Serious: No
  Sender: FDA-Public Use
  Company Number: US-ASTRAZENECA-2010SE14872

PATIENT

DRUGS (1)
  1. NEXIUM [Suspect]
     Route: 048

REACTIONS (13)
  - INTERVERTEBRAL DISC PROTRUSION [None]
  - FIBROMYALGIA [None]
  - GASTROOESOPHAGEAL REFLUX DISEASE [None]
  - DIVERTICULITIS [None]
  - PAIN [None]
  - RESTLESS LEGS SYNDROME [None]
  - ANXIETY [None]
  - INTERVERTEBRAL DISC DEGENERATION [None]
  - GLUCOSE TOLERANCE IMPAIRED [None]
  - MULTIPLE ALLERGIES [None]
  - ARTHRITIS [None]
  - ASTHMA [None]
  - HYPERTENSION [None]
